FAERS Safety Report 22000421 (Version 1)
Quarter: 2023Q1

REPORT INFORMATION
  Report Type: Spontaneous
  Country: US (occurrence: US)
  Receive Date: 20230216
  Receipt Date: 20230216
  Transmission Date: 20230418
  Serious: Yes (Hospitalization, Other)
  Sender: FDA-Public Use
  Company Number: US-ELI_LILLY_AND_COMPANY-US202301004201

PATIENT
  Sex: Male

DRUGS (2)
  1. CIALIS [Suspect]
     Active Substance: TADALAFIL
     Indication: Erectile dysfunction
     Dosage: 5 MG, UNKNOWN
     Route: 065
     Dates: start: 2008
  2. CIALIS [Suspect]
     Active Substance: TADALAFIL
     Dosage: 20 MG, UNKNOWN
     Route: 065
     Dates: start: 2013

REACTIONS (8)
  - Coronary artery occlusion [Recovered/Resolved]
  - Cardiac valve disease [Recovered/Resolved]
  - Prostate cancer [Unknown]
  - Nerve injury [Unknown]
  - Dislocation of sternum [Not Recovered/Not Resolved]
  - Decreased appetite [Unknown]
  - Headache [Recovered/Resolved]
  - Drug ineffective [Recovering/Resolving]

NARRATIVE: CASE EVENT DATE: 20130101
